FAERS Safety Report 23091598 (Version 2)
Quarter: 2023Q4

REPORT INFORMATION
  Report Type: Spontaneous
  Country: JP (occurrence: JP)
  Receive Date: 20231020
  Receipt Date: 20231115
  Transmission Date: 20240109
  Serious: Yes (Hospitalization, Other)
  Sender: FDA-Public Use
  Company Number: JP-002147023-NVSJ2023JP015197

PATIENT
  Age: 49 Year
  Sex: Male

DRUGS (1)
  1. TASIGNA [Suspect]
     Active Substance: NILOTINIB
     Indication: Chronic myeloid leukaemia
     Dosage: 150-600MG, UNK
     Route: 048
     Dates: start: 20180820, end: 20220727

REACTIONS (1)
  - Moyamoya disease [Recovering/Resolving]

NARRATIVE: CASE EVENT DATE: 20210925
